FAERS Safety Report 15596844 (Version 2)
Quarter: 2019Q4

REPORT INFORMATION
  Report Type: Report from Study
  Country: None (occurrence: US)
  Receive Date: 20181108
  Receipt Date: 20191223
  Transmission Date: 20200122
  Serious: Yes (Hospitalization, Other)
  Sender: FDA-Public Use
  Company Number: US-ABBVIE-18K-163-2484952-00

PATIENT
  Age: 74 Year
  Sex: Female
  Weight: 70.37 kg

DRUGS (2)
  1. HUMIRA [Suspect]
     Active Substance: ADALIMUMAB
     Indication: RHEUMATOID ARTHRITIS
     Route: 058
  2. HUMIRA [Suspect]
     Active Substance: ADALIMUMAB
     Route: 058
     Dates: start: 20190525, end: 20190608

REACTIONS (4)
  - Coronary artery occlusion [Unknown]
  - Bacterial infection [Unknown]
  - Hospitalisation [Unknown]
  - Muscle strain [Unknown]

NARRATIVE: CASE EVENT DATE: 201808
